FAERS Safety Report 13660105 (Version 4)
Quarter: 2018Q1

REPORT INFORMATION
  Report Type: Spontaneous
  Country: JP (occurrence: JP)
  Receive Date: 20170616
  Receipt Date: 20180226
  Transmission Date: 20180508
  Serious: Yes (Other)
  Sender: FDA-Public Use
  Company Number: PHHY2017JP085395

PATIENT
  Age: 30 Year
  Sex: Female
  Weight: 52 kg

DRUGS (28)
  1. ETHAMBUTOL [Suspect]
     Active Substance: ETHAMBUTOL HYDROCHLORIDE
     Indication: DISSEMINATED TUBERCULOSIS
  2. ISONIAZID. [Suspect]
     Active Substance: ISONIAZID
     Dosage: 300 MG, UNK
     Route: 037
  3. ISONIAZID. [Suspect]
     Active Substance: ISONIAZID
     Dosage: 500 MG, UNK
     Route: 037
  4. LEVOFLOXACIN. [Suspect]
     Active Substance: LEVOFLOXACIN
     Indication: MENINGITIS TUBERCULOUS
     Dosage: 500 MG, QD
     Route: 065
  5. PYRAZINAMIDE. [Suspect]
     Active Substance: PYRAZINAMIDE
     Indication: MENINGITIS TUBERCULOUS
     Dosage: 1.2 G, QD
     Route: 065
  6. EDARAVONE [Concomitant]
     Active Substance: EDARAVONE
     Route: 065
  7. ASPIRIN. [Concomitant]
     Active Substance: ASPIRIN
     Indication: TRANSVERSE SINUS THROMBOSIS
  8. ISONIAZID. [Suspect]
     Active Substance: ISONIAZID
     Indication: MENINGITIS TUBERCULOUS
     Dosage: 100 MG, QW
     Route: 037
  9. DEXAMETHASONE. [Suspect]
     Active Substance: DEXAMETHASONE
     Indication: MENINGITIS TUBERCULOUS
     Dosage: 19.6 MG, QD
     Route: 065
  10. DEXAMETHASONE. [Suspect]
     Active Substance: DEXAMETHASONE
     Indication: DISSEMINATED TUBERCULOSIS
  11. RIFAMPICIN [Suspect]
     Active Substance: RIFAMPIN
     Indication: MENINGITIS TUBERCULOUS
     Dosage: 450 MG, QD
     Route: 065
  12. RIFAMPICIN [Suspect]
     Active Substance: RIFAMPIN
     Indication: DISSEMINATED TUBERCULOSIS
  13. ISONIAZID. [Suspect]
     Active Substance: ISONIAZID
     Dosage: 100 MG, 1 IN 1 WK
     Route: 037
  14. ASPIRIN. [Concomitant]
     Active Substance: ASPIRIN
     Indication: NONINFECTIVE ENCEPHALITIS
  15. PYRAZINAMIDE. [Suspect]
     Active Substance: PYRAZINAMIDE
     Indication: DISSEMINATED TUBERCULOSIS
     Dosage: 1.2 G, QD
     Route: 065
  16. ISONIAZID. [Suspect]
     Active Substance: ISONIAZID
     Dosage: 100 MG, TIW
     Route: 037
  17. DEXAMETHASONE. [Suspect]
     Active Substance: DEXAMETHASONE
     Indication: DISSEMINATED TUBERCULOSIS
     Dosage: 19.6 MG, QD
     Route: 065
  18. MEROPENEM. [Suspect]
     Active Substance: MEROPENEM
     Indication: MENINGITIS TUBERCULOUS
     Dosage: 6 G, QD
     Route: 065
  19. HEPARIN SODIUM. [Suspect]
     Active Substance: HEPARIN SODIUM
     Indication: CEREBRAL INFARCTION
     Dosage: 10000 UNITS PER DAY
     Route: 065
  20. ASPIRIN. [Concomitant]
     Active Substance: ASPIRIN
     Indication: NONINFECTIVE ENCEPHALITIS
     Dosage: 100 MG, UNK
     Route: 065
  21. LEVOFLOXACIN. [Suspect]
     Active Substance: LEVOFLOXACIN
     Indication: DISSEMINATED TUBERCULOSIS
  22. PYRAZINAMIDE. [Suspect]
     Active Substance: PYRAZINAMIDE
     Indication: DISSEMINATED TUBERCULOSIS
  23. ASPIRIN. [Concomitant]
     Active Substance: ASPIRIN
     Indication: TRANSVERSE SINUS THROMBOSIS
     Dosage: UNK
     Route: 065
  24. STREPTOMYCIN [Concomitant]
     Active Substance: STREPTOMYCIN\STREPTOMYCIN SULFATE
     Indication: DISSEMINATED TUBERCULOSIS
  25. ETHAMBUTOL [Suspect]
     Active Substance: ETHAMBUTOL HYDROCHLORIDE
     Indication: MENINGITIS TUBERCULOUS
     Dosage: 750 MG, QD
     Route: 065
  26. ISONIAZID. [Suspect]
     Active Substance: ISONIAZID
     Indication: DISSEMINATED TUBERCULOSIS
     Dosage: 200 MG, QD
     Route: 037
  27. STREPTOMYCIN [Concomitant]
     Active Substance: STREPTOMYCIN\STREPTOMYCIN SULFATE
     Indication: MENINGITIS TUBERCULOUS
     Dosage: 1 G, QD
     Route: 065
  28. STREPTOMYCIN [Concomitant]
     Active Substance: STREPTOMYCIN\STREPTOMYCIN SULFATE
     Indication: DISSEMINATED TUBERCULOSIS

REACTIONS (2)
  - Stillbirth [Recovered/Resolved]
  - Maternal exposure during pregnancy [Unknown]
